FAERS Safety Report 14037211 (Version 2)
Quarter: 2017Q4

REPORT INFORMATION
  Report Type: Spontaneous
  Country: US (occurrence: US)
  Receive Date: 20171004
  Receipt Date: 20171102
  Transmission Date: 20180321
  Serious: Yes (Other)
  Sender: FDA-Public Use
  Company Number: US-RECKITT BENCKISER HEALTHCARE INT LIMITED-RB-95950-2017

PATIENT
  Age: 15 Year
  Sex: Male

DRUGS (1)
  1. DELSYM [Suspect]
     Active Substance: DEXTROMETHORPHAN
     Indication: COUGH
     Dosage: 10 ML, SINGLE
     Route: 065
     Dates: start: 20170923, end: 20170923

REACTIONS (1)
  - Hallucination [Recovered/Resolved]

NARRATIVE: CASE EVENT DATE: 20170923
